FAERS Safety Report 7129425-0 (Version None)
Quarter: 2010Q4

REPORT INFORMATION
  Report Type: 
  Country: None (occurrence: None)
  Receive Date: 20101130
  Receipt Date: 20101122
  Transmission Date: 20110411
  Serious: Yes (Other)
  Sender: FDA-Public Use
  Company Number: FR-CEPHALON-2010005987

PATIENT
  Age: 14 Year
  Sex: Male

DRUGS (1)
  1. MODAFINIL [Suspect]
     Indication: HYPERSOMNIA
     Route: 048

REACTIONS (2)
  - DRUG PRESCRIBING ERROR [None]
  - HAEMATOCHEZIA [None]
